FAERS Safety Report 20291292 (Version 2)
Quarter: 2022Q1

REPORT INFORMATION
  Report Type: Spontaneous
  Country: US (occurrence: None)
  Receive Date: 20220104
  Receipt Date: 20220211
  Transmission Date: 20220424
  Serious: Yes (Other)
  Sender: FDA-Public Use
  Company Number: 2021A909534

PATIENT
  Sex: Male
  Weight: 71.7 kg

DRUGS (1)
  1. BUDESONIDE\FORMOTEROL\GLYCOPYRRONIUM [Suspect]
     Active Substance: BUDESONIDE\FORMOTEROL\GLYCOPYRRONIUM
     Indication: COVID-19
     Dosage: 160/9/4.8/120, 2 PUFFS, TWO TIMES A DAY
     Route: 055
     Dates: start: 202102

REACTIONS (7)
  - Total lung capacity decreased [Not Recovered/Not Resolved]
  - Scar [Unknown]
  - Pneumonia [Unknown]
  - Product prescribing error [Unknown]
  - Product dose omission issue [Unknown]
  - Device malfunction [Unknown]
  - Device use issue [Unknown]
